FAERS Safety Report 9355544 (Version 1)
Quarter: 2013Q2

REPORT INFORMATION
  Report Type: Spontaneous
  Country: US (occurrence: US)
  Receive Date: 20130619
  Receipt Date: 20130619
  Transmission Date: 20140414
  Serious: Yes (Other)
  Sender: FDA-Public Use
  Company Number: US-PFIZER INC-2013178010

PATIENT
  Age: 68 Year
  Sex: Female

DRUGS (14)
  1. SOMAVERT [Suspect]
     Indication: ACROMEGALY
     Dosage: 20 MG, 2X/DAY
     Route: 058
  2. CENTRUM SILVER [Concomitant]
     Dosage: UNK
  3. CELEBREX [Concomitant]
     Dosage: 100 MG, UNK
  4. PAXIL [Concomitant]
     Dosage: 10 MG, UNK
  5. LASIX [Concomitant]
     Dosage: 20 MG, UNK
  6. LYRICA [Concomitant]
     Dosage: 100 MG, UNK
  7. LISINOPRIL [Concomitant]
     Dosage: 10 MG, UNK
  8. SIMVASTATIN [Concomitant]
     Dosage: 10 MG, UNK
  9. METFORMIN [Concomitant]
     Dosage: 1000 MG, UNK
  10. NEXIUM [Concomitant]
     Dosage: 20 MG, UNK
  11. VITAMIN D [Concomitant]
     Dosage: 1000 UNITS
  12. CALCIUM + D [Concomitant]
     Dosage: UNK
  13. MAGNESIUM [Concomitant]
     Dosage: 300 MG, UNK
  14. HOMATROPINE/HYDROCODONE [Concomitant]
     Dosage: UNK

REACTIONS (2)
  - Diabetes mellitus [Unknown]
  - Trigeminal nerve disorder [Unknown]
